FAERS Safety Report 7787282-3 (Version None)
Quarter: 2011Q3

REPORT INFORMATION
  Report Type: 
  Country: None (occurrence: None)
  Receive Date: 20110929
  Receipt Date: 20110921
  Transmission Date: 20111222
  Serious: Yes (Hospitalization, Other)
  Sender: FDA-Public Use
  Company Number: US-BAXTER-2011BH029091

PATIENT
  Sex: Male

DRUGS (1)
  1. DIANEAL [Suspect]
     Indication: PERITONEAL DIALYSIS
     Route: 033

REACTIONS (4)
  - INTESTINAL MUCOSAL HYPERTROPHY [None]
  - ENTERITIS INFECTIOUS [None]
  - INFECTIOUS PERITONITIS [None]
  - IRRITABLE BOWEL SYNDROME [None]
